FAERS Safety Report 13128680 (Version 1)
Quarter: 2017Q1

REPORT INFORMATION
  Report Type: Spontaneous
  Country: US (occurrence: US)
  Receive Date: 20170118
  Receipt Date: 20170118
  Transmission Date: 20170428
  Serious: No
  Sender: FDA-Public Use
  Company Number: US-LUPIN PHARMACEUTICALS INC.-E2B_00006032

PATIENT
  Sex: Female
  Weight: 93.52 kg

DRUGS (4)
  1. METOPROLOL. [Concomitant]
     Active Substance: METOPROLOL
     Indication: HYPERTENSION
     Route: 065
  2. TRAMADOL 50 MG [Concomitant]
     Active Substance: TRAMADOL
     Indication: OSTEOARTHRITIS
     Dosage: 50 MG
     Route: 065
  3. LISINOPRIL+HCTZ [Concomitant]
     Indication: HYPERTENSION
     Dosage: 20 MG/ 25 MG
     Route: 048
  4. TRAMADOL HYDROCHLORIDE EXTENDED-RELEASE TABLETS 300 MG [Suspect]
     Active Substance: TRAMADOL HYDROCHLORIDE
     Indication: OSTEOARTHRITIS
     Dates: start: 20160712

REACTIONS (3)
  - Product physical issue [Unknown]
  - Disturbance in attention [Recovered/Resolved]
  - Fatigue [Recovered/Resolved]
